FAERS Safety Report 13207585 (Version 1)
Quarter: 2017Q1

REPORT INFORMATION
  Report Type: Spontaneous
  Country: US (occurrence: US)
  Receive Date: 20170209
  Receipt Date: 20170209
  Transmission Date: 20170428
  Serious: No
  Sender: FDA-Public Use
  Company Number: US-SA-2017SA007343

PATIENT
  Sex: Female

DRUGS (4)
  1. ALIROCUMAB PREFILLED PEN [Concomitant]
     Active Substance: ALIROCUMAB
  2. PRALUENT [Suspect]
     Active Substance: ALIROCUMAB
     Route: 058
  3. PRALUENT [Suspect]
     Active Substance: ALIROCUMAB
     Route: 058
  4. ALIROCUMAB PREFILLED PEN [Concomitant]
     Active Substance: ALIROCUMAB

REACTIONS (2)
  - Musculoskeletal discomfort [Unknown]
  - Product use issue [Unknown]
